FAERS Safety Report 7430065-4 (Version None)
Quarter: 2011Q2

REPORT INFORMATION
  Report Type: 
  Country: None (occurrence: None)
  Receive Date: 20110421
  Receipt Date: 20110125
  Transmission Date: 20111010
  Serious: No
  Sender: FDA-Public Use
  Company Number: US-ASTRAZENECA-2008UW13246

PATIENT
  Sex: Female
  Weight: 99.8 kg

DRUGS (9)
  1. TOPROL-XL [Suspect]
     Route: 048
  2. PROZAC [Concomitant]
  3. LORAZEPAM [Concomitant]
  4. VITAMINS [Concomitant]
  5. METOPROLOL SUCCINATE [Suspect]
     Route: 048
  6. ASPIRIN [Concomitant]
  7. SYNTHROID [Concomitant]
  8. DONNATAL [Concomitant]
  9. ELAVIL [Concomitant]

REACTIONS (6)
  - HEADACHE [None]
  - PALPITATIONS [None]
  - CATARACT [None]
  - HEART RATE INCREASED [None]
  - DIARRHOEA [None]
  - WRONG TECHNIQUE IN DRUG USAGE PROCESS [None]
